FAERS Safety Report 8032780-0 (Version None)
Quarter: 2012Q1

REPORT INFORMATION
  Report Type: 
  Country: None (occurrence: None)
  Receive Date: 20120110
  Receipt Date: 20120103
  Transmission Date: 20120608
  Serious: Yes (Death)
  Sender: FDA-Public Use
  Company Number: CL-GENZYME-POMP-1001886

PATIENT

DRUGS (1)
  1. MYOZYME [Suspect]
     Indication: GLYCOGEN STORAGE DISEASE TYPE II
     Dosage: UNK
     Dates: start: 20110504, end: 20111118

REACTIONS (2)
  - CARDIO-RESPIRATORY ARREST [None]
  - PYELONEPHRITIS [None]
